FAERS Safety Report 14498510 (Version 1)
Quarter: 2018Q1

REPORT INFORMATION
  Report Type: Spontaneous
  Country: IT (occurrence: IT)
  Receive Date: 20180207
  Receipt Date: 20180207
  Transmission Date: 20180509
  Serious: Yes (Hospitalization)
  Sender: FDA-Public Use
  Company Number: IT-SA-2018SA022051

PATIENT
  Age: 31 Year
  Sex: Female

DRUGS (2)
  1. MENOTROPHIN [Suspect]
     Active Substance: MENOTROPINS
     Indication: OVULATION INDUCTION
     Dosage: THREE CYCLES
     Route: 065
  2. CLOMIFENE CITRATE [Suspect]
     Active Substance: CLOMIPHENE
     Indication: OVULATION INDUCTION
     Dosage: THREE CYCLE
     Route: 065

REACTIONS (2)
  - Multiple pregnancy [Recovered/Resolved]
  - Ovarian hyperstimulation syndrome [Recovered/Resolved]
